FAERS Safety Report 17224600 (Version 1)
Quarter: 2020Q1

REPORT INFORMATION
  Report Type: Spontaneous
  Country: CN (occurrence: CN)
  Receive Date: 20200102
  Receipt Date: 20200102
  Transmission Date: 20200409
  Serious: Yes (Life-Threatening)
  Sender: FDA-Public Use
  Company Number: CN-PFIZER INC-2019560380

PATIENT
  Age: 32 Year
  Sex: Female
  Weight: 67 kg

DRUGS (2)
  1. HEMABATE [Suspect]
     Active Substance: CARBOPROST TROMETHAMINE
     Indication: UTERINE CONTRACTIONS ABNORMAL
     Dosage: 250 UG, 1X/DAY
     Dates: start: 20191212, end: 20191212
  2. ERGOMETRINE MALEATE [Concomitant]
     Active Substance: ERGONOVINE MALEATE
     Indication: UTERINE CONTRACTIONS ABNORMAL
     Dosage: 0.2 MG, 1X/DAY
     Dates: start: 20191212, end: 20191212

REACTIONS (5)
  - Altered state of consciousness [Recovering/Resolving]
  - Confusional state [Recovering/Resolving]
  - Palpitations [Recovering/Resolving]
  - Respiratory depression [Recovering/Resolving]
  - Chest discomfort [Recovering/Resolving]

NARRATIVE: CASE EVENT DATE: 20191212
